FAERS Safety Report 4537154-2 (Version None)
Quarter: 2004Q4

REPORT INFORMATION
  Report Type: 
  Country: None (occurrence: None)
  Receive Date: 20041223
  Receipt Date: 20041214
  Transmission Date: 20050328
  Serious: Yes (Death, Other)
  Sender: FDA-Public Use
  Company Number: PHBS2004TW17046

PATIENT
  Age: 31 Year
  Sex: Male

DRUGS (6)
  1. METHOTREXATE [Concomitant]
  2. BUSULFAN [Concomitant]
  3. CYCLOPHOSPHAMIDE [Concomitant]
  4. ANTITHYMOCYTE IMMUNOGLOBULIN [Concomitant]
  5. MYCOPHENOLATE MOFETIL [Concomitant]
  6. CYCLOSPORINE [Suspect]
     Indication: STEM CELL TRANSPLANT

REACTIONS (11)
  - ANOREXIA [None]
  - ENDOSCOPY ABNORMAL [None]
  - GASTRIC HAEMORRHAGE [None]
  - GRAFT VERSUS HOST DISEASE [None]
  - HAEMATEMESIS [None]
  - HAEMOGLOBIN DECREASED [None]
  - INFECTION [None]
  - MELAENA [None]
  - MULTI-ORGAN FAILURE [None]
  - NAUSEA [None]
  - VOMITING [None]
